FAERS Safety Report 20153693 (Version 1)
Quarter: 2021Q4

REPORT INFORMATION
  Report Type: Spontaneous
  Country: CA (occurrence: CA)
  Receive Date: 20211207
  Receipt Date: 20211207
  Transmission Date: 20220303
  Serious: Yes (Other)
  Sender: FDA-Public Use
  Company Number: CA-AUROBINDO-AUR-APL-2021-049939

PATIENT
  Age: 64 Year
  Sex: Male

DRUGS (9)
  1. ONDANSETRON [Suspect]
     Active Substance: ONDANSETRON
     Indication: Product used for unknown indication
     Dosage: 4.0  MILLIGRAM
     Route: 065
  2. TRANEXAMIC ACID [Suspect]
     Active Substance: TRANEXAMIC ACID
     Indication: Product used for unknown indication
     Dosage: 1.0  GRAM
     Route: 065
  3. BUPIVACAINE [Suspect]
     Active Substance: BUPIVACAINE
     Indication: Spinal anaesthesia
     Dosage: 2.0  MILLILITER
     Route: 065
  4. CEFAZOLIN [Suspect]
     Active Substance: CEFAZOLIN
     Indication: Product used for unknown indication
     Dosage: 2.0  GRAM
     Route: 065
  5. DEXAMETHASONE [Suspect]
     Active Substance: DEXAMETHASONE
     Indication: Product used for unknown indication
     Dosage: 8.0 MILLIGRAM
     Route: 065
  6. FENTANYL [Suspect]
     Active Substance: FENTANYL
     Indication: Product used for unknown indication
     Dosage: 50.0  MICROGRAM
     Route: 065
  7. MIDAZOLAM [Suspect]
     Active Substance: MIDAZOLAM
     Indication: Product used for unknown indication
     Dosage: 1.0  GRAM
     Route: 065
  8. PROPOFOL [Suspect]
     Active Substance: PROPOFOL
     Indication: Sedation
     Dosage: 0.06  MILLIGRAM/KILOGRAM
     Route: 042
  9. PROPOFOL [Suspect]
     Active Substance: PROPOFOL
     Dosage: 0.05 MILLIGRAM/KILOGRAM
     Route: 042

REACTIONS (2)
  - Myoclonus [Unknown]
  - Post procedural hypotension [Unknown]
